FAERS Safety Report 6254217-4 (Version None)
Quarter: 2009Q3

REPORT INFORMATION
  Report Type: 
  Country: None (occurrence: None)
  Receive Date: 20090702
  Receipt Date: 20090624
  Transmission Date: 20100115
  Serious: Yes (Hospitalization)
  Sender: FDA-Public Use
  Company Number: AU-ASTRAZENECA-2009SE03294

PATIENT
  Age: 65 Year
  Sex: Female

DRUGS (5)
  1. ATACAND [Suspect]
     Route: 048
  2. NEXIUM [Suspect]
     Route: 048
  3. LIPITOR [Suspect]
  4. PAROXETINE HCL [Suspect]
  5. PREMARIN [Suspect]

REACTIONS (1)
  - CEREBROVASCULAR ACCIDENT [None]
